FAERS Safety Report 6080009-5 (Version None)
Quarter: 2009Q1

REPORT INFORMATION
  Report Type: 
  Country: None (occurrence: None)
  Receive Date: 20090217
  Receipt Date: 20090205
  Transmission Date: 20090719
  Serious: Yes (Hospitalization)
  Sender: FDA-Public Use
  Company Number: GB-ROCHE-613500

PATIENT
  Sex: Female
  Weight: 120 kg

DRUGS (4)
  1. ORLISTAT [Suspect]
     Indication: OBESITY
     Route: 048
     Dates: start: 20080917
  2. METFORMIN HCL [Concomitant]
     Dosage: DOSAGE UNKNOWN
     Route: 048
  3. IRON TABLETS [Concomitant]
     Indication: IRON DEFICIENCY
     Dosage: DOSAGE UNKNOWN
     Route: 048
  4. LISINOPRIL [Concomitant]
     Indication: DRUG USE FOR UNKNOWN INDICATION
     Dosage: DOSAGE UNKNOWN
     Route: 048

REACTIONS (1)
  - OEDEMA PERIPHERAL [None]
